FAERS Safety Report 5630671-3 (Version None)
Quarter: 2008Q1

REPORT INFORMATION
  Report Type: 
  Country: None (occurrence: None)
  Receive Date: 20080213
  Receipt Date: 20080131
  Transmission Date: 20080703
  Serious: Yes (Hospitalization)
  Sender: FDA-Public Use
  Company Number: ADE2008-0114

PATIENT
  Age: 57 Year
  Sex: Male
  Weight: 76.6579 kg

DRUGS (2)
  1. TERBINAFINE HCL [Suspect]
     Indication: ONYCHOMYCOSIS
     Dosage: 250MG - DAILY - PO
     Route: 048
     Dates: start: 20071208, end: 20080107
  2. CRESTOR [Concomitant]

REACTIONS (14)
  - DRY SKIN [None]
  - DYSPNOEA [None]
  - ERYTHEMA MULTIFORME [None]
  - HAEMATOCRIT INCREASED [None]
  - HAEMOGLOBIN INCREASED [None]
  - LYMPHADENOPATHY [None]
  - LYMPHOMA [None]
  - MYCOPLASMA INFECTION [None]
  - PHYSICAL EXAMINATION ABNORMAL [None]
  - PROTEIN URINE PRESENT [None]
  - SKIN REACTION [None]
  - SKIN WARM [None]
  - TACHYCARDIA [None]
  - VIRAL INFECTION [None]
